FAERS Safety Report 8520688-3 (Version None)
Quarter: 2012Q3

REPORT INFORMATION
  Report Type: 
  Country: None (occurrence: None)
  Receive Date: 20120705
  Receipt Date: 20120621
  Transmission Date: 20120928
  Serious: Yes (Hospitalization)
  Sender: FDA-Public Use
  Company Number: 2012P1045380

PATIENT
  Age: 88 Year
  Sex: Female

DRUGS (7)
  1. FUROSEMIDE [Concomitant]
  2. WARFARIN SODIUM [Concomitant]
  3. SODIUM POLYSTYRENE SULFONATE [Concomitant]
  4. DIGOXIN [Suspect]
     Indication: ATRIAL FIBRILLATION
     Dosage: .125 MG;QD;PO
     Route: 048
     Dates: start: 20100101, end: 20120615
  5. TRINEVRINA [Concomitant]
  6. LEUCOVORIN CALCIUM [Concomitant]
  7. ENLAPRIL MALEATE [Concomitant]

REACTIONS (5)
  - CARDIOACTIVE DRUG LEVEL ABOVE THERAPEUTIC [None]
  - TOXICITY TO VARIOUS AGENTS [None]
  - ELECTROCARDIOGRAM ST-T SEGMENT ABNORMAL [None]
  - LEFT VENTRICULAR FAILURE [None]
  - NAUSEA [None]
